FAERS Safety Report 24024152 (Version 2)
Quarter: 2024Q3

REPORT INFORMATION
  Report Type: Spontaneous
  Country: FR (occurrence: FR)
  Receive Date: 20240627
  Receipt Date: 20240710
  Transmission Date: 20241016
  Serious: No
  Sender: ROCHE
  Company Number: None

PATIENT
  Age: 39 Year
  Sex: Female
  Weight: 104.0 kg

DRUGS (1)
  1. ALECTINIB [Suspect]
     Active Substance: ALECTINIB
     Indication: Small cell lung cancer
     Dosage: 4 GEL /DAY
     Route: 065
     Dates: start: 20201001

REACTIONS (3)
  - Blood glucose increased [Not Recovered/Not Resolved]
  - Amnesia [Not Recovered/Not Resolved]
  - Myalgia [Not Recovered/Not Resolved]

NARRATIVE: CASE EVENT DATE: 20201001
